FAERS Safety Report 15929557 (Version 4)
Quarter: 2019Q4

REPORT INFORMATION
  Report Type: Spontaneous
  Country: US (occurrence: US)
  Receive Date: 20190206
  Receipt Date: 20191126
  Transmission Date: 20200122
  Serious: Yes (Other)
  Sender: FDA-Public Use
  Company Number: US-ASTRAZENECA-2018SF66171

PATIENT
  Age: 59 Year
  Sex: Male
  Weight: 104.3 kg

DRUGS (27)
  1. WARFARIN SODIUM. [Concomitant]
     Active Substance: WARFARIN SODIUM
  2. MONTELUKAST [Concomitant]
     Active Substance: MONTELUKAST SODIUM
  3. IPRATROPIUM BROMIDE. [Concomitant]
     Active Substance: IPRATROPIUM BROMIDE
  4. LOVENOX [Concomitant]
     Active Substance: ENOXAPARIN SODIUM
  5. POTASSIUM CHLORIDE. [Concomitant]
     Active Substance: POTASSIUM CHLORIDE
  6. MELOXICAM. [Concomitant]
     Active Substance: MELOXICAM
  7. PROTONIX [Suspect]
     Active Substance: PANTOPRAZOLE SODIUM
     Indication: GASTROOESOPHAGEAL REFLUX DISEASE
     Route: 065
     Dates: start: 2006, end: 2016
  8. GLIPIZIDE. [Concomitant]
     Active Substance: GLIPIZIDE
  9. ASPIRIN. [Concomitant]
     Active Substance: ASPIRIN
  10. CELEBREX [Concomitant]
     Active Substance: CELECOXIB
  11. CIALIS [Concomitant]
     Active Substance: TADALAFIL
  12. NEXIUM [Suspect]
     Active Substance: ESOMEPRAZOLE MAGNESIUM
     Indication: GASTROOESOPHAGEAL REFLUX DISEASE
     Route: 048
     Dates: start: 20130807, end: 20161117
  13. NITROSTAT [Concomitant]
     Active Substance: NITROGLYCERIN
  14. NEXIUM [Suspect]
     Active Substance: ESOMEPRAZOLE MAGNESIUM
     Indication: GASTROOESOPHAGEAL REFLUX DISEASE
     Dosage: 40.0MG UNKNOWN
     Route: 048
     Dates: start: 2006
  15. RANEXA [Concomitant]
     Active Substance: RANOLAZINE
  16. PROAIR HFA [Concomitant]
     Active Substance: ALBUTEROL SULFATE
  17. VOLTAREN [Concomitant]
     Active Substance: DICLOFENAC SODIUM
  18. CARAFATE [Concomitant]
     Active Substance: SUCRALFATE
  19. NEXIUM [Suspect]
     Active Substance: ESOMEPRAZOLE MAGNESIUM
     Indication: GASTROOESOPHAGEAL REFLUX DISEASE
     Route: 048
     Dates: start: 2006, end: 2016
  20. FUROSEMIDE. [Concomitant]
     Active Substance: FUROSEMIDE
  21. TOPROL XL [Concomitant]
     Active Substance: METOPROLOL SUCCINATE
  22. LEVOTHYROXINE. [Concomitant]
     Active Substance: LEVOTHYROXINE
  23. METOLAZONE. [Concomitant]
     Active Substance: METOLAZONE
  24. FLUTICASONE PROPIONATE. [Concomitant]
     Active Substance: FLUTICASONE PROPIONATE
  25. AUGMENTIN [Concomitant]
     Active Substance: AMOXICILLIN\CLAVULANATE POTASSIUM
  26. VITAMIN D3 [Concomitant]
     Active Substance: CHOLECALCIFEROL
  27. OMEGA 3 [Concomitant]
     Active Substance: OMEGA-3 FATTY ACIDS

REACTIONS (2)
  - Renal injury [Unknown]
  - Chronic kidney disease [Not Recovered/Not Resolved]

NARRATIVE: CASE EVENT DATE: 2014
